FAERS Safety Report 23985749 (Version 1)
Quarter: 2024Q2

REPORT INFORMATION
  Report Type: Spontaneous
  Country: CN (occurrence: CN)
  Receive Date: 20240618
  Receipt Date: 20240618
  Transmission Date: 20240715
  Serious: Yes (Life-Threatening)
  Sender: FDA-Public Use
  Company Number: CN-Merck Healthcare KGaA-2024032163

PATIENT
  Age: 72 Year
  Sex: Male
  Weight: 60 kg

DRUGS (10)
  1. ERBITUX [Suspect]
     Active Substance: CETUXIMAB
     Indication: Rectal cancer metastatic
     Dosage: 0.8 G, OTHER (ONCE)
     Route: 041
     Dates: start: 20240529
  2. IRINOTECAN HYDROCHLORIDE [Suspect]
     Active Substance: IRINOTECAN HYDROCHLORIDE
     Indication: Rectal cancer metastatic
     Dosage: 240 MG, UNKNOWN
     Route: 041
     Dates: start: 20240527, end: 20240527
  3. FLUOROURACIL [Suspect]
     Active Substance: FLUOROURACIL
     Indication: Rectal cancer metastatic
     Dosage: 0.66 G, DAILY
     Route: 040
     Dates: start: 20240527, end: 20240527
  4. FLUOROURACIL [Suspect]
     Active Substance: FLUOROURACIL
     Dosage: 3.9 G, EVERY 8 HRS
     Route: 042
     Dates: start: 20240527, end: 20240529
  5. SODIUM CHLORIDE [Concomitant]
     Active Substance: SODIUM CHLORIDE
     Indication: Medication dilution
     Dosage: 250 ML, DAILY
     Route: 041
     Dates: start: 20240527, end: 20240527
  6. SODIUM CHLORIDE [Concomitant]
     Active Substance: SODIUM CHLORIDE
     Dosage: 20 ML, DAILY
     Route: 042
     Dates: start: 20240527, end: 20240527
  7. SODIUM CHLORIDE [Concomitant]
     Active Substance: SODIUM CHLORIDE
     Dosage: 110 ML, EVERY 8 HRS
     Route: 050
     Dates: start: 20240527, end: 20240529
  8. SODIUM CHLORIDE [Concomitant]
     Active Substance: SODIUM CHLORIDE
     Dosage: 90 ML, DAILY
     Route: 041
     Dates: start: 20240529, end: 20240529
  9. LEUCOVORIN CALCIUM [Concomitant]
     Active Substance: LEUCOVORIN CALCIUM
     Indication: Rectal cancer metastatic
     Dosage: 0.66 G, DAILY
     Route: 041
     Dates: start: 20240527, end: 20240527
  10. DEXTROSE [Concomitant]
     Active Substance: DEXTROSE\DEXTROSE MONOHYDRATE
     Indication: Medication dilution
     Dosage: 250 ML, DAILY
     Route: 041
     Dates: start: 20240527, end: 20240527

REACTIONS (2)
  - Myelosuppression [Recovering/Resolving]
  - Stomatitis [Recovering/Resolving]

NARRATIVE: CASE EVENT DATE: 20240531
